FAERS Safety Report 7437420-7 (Version None)
Quarter: 2011Q2

REPORT INFORMATION
  Report Type: 
  Country: None (occurrence: None)
  Receive Date: 20110426
  Receipt Date: 20110418
  Transmission Date: 20111010
  Serious: Yes (Life-Threatening, Other)
  Sender: FDA-Public Use
  Company Number: JP-SANOFI-AVENTIS-2010SA078709

PATIENT
  Age: 49 Year
  Sex: Female

DRUGS (10)
  1. CISPLATIN [Concomitant]
     Dates: start: 20101124, end: 20101124
  2. ELPLAT [Suspect]
     Route: 041
     Dates: start: 20101222, end: 20101222
  3. AVASTIN [Suspect]
     Indication: LARGE INTESTINE CARCINOMA
     Route: 041
     Dates: start: 20100922, end: 20100922
  4. AVASTIN [Suspect]
     Route: 041
     Dates: start: 20101222, end: 20101222
  5. LEUCOVORIN CALCIUM [Concomitant]
     Dates: start: 20090916, end: 20090916
  6. LEUCOVORIN CALCIUM [Concomitant]
     Dates: start: 20101222, end: 20101222
  7. CISPLATIN [Concomitant]
     Dates: start: 20090916, end: 20090916
  8. DEXAMETHASONE SODIUM PHOSPHATE [Concomitant]
     Dates: start: 20090916, end: 20101222
  9. ELPLAT [Suspect]
     Indication: LARGE INTESTINE CARCINOMA
     Route: 041
     Dates: start: 20090916, end: 20090916
  10. GRANISETRON HCL [Concomitant]
     Dates: start: 20090916, end: 20091222

REACTIONS (11)
  - INJECTION SITE HAEMORRHAGE [None]
  - PURPURA [None]
  - THROMBOCYTOPENIA [None]
  - RESPIRATORY RATE INCREASED [None]
  - COUGH [None]
  - URTICARIA [None]
  - DIARRHOEA [None]
  - ABDOMINAL PAIN [None]
  - HAEMOPTYSIS [None]
  - CHILLS [None]
  - PRURITUS GENERALISED [None]
